FAERS Safety Report 7368318-0 (Version None)
Quarter: 2011Q1

REPORT INFORMATION
  Report Type: 
  Country: None (occurrence: None)
  Receive Date: 20110323
  Receipt Date: 20110311
  Transmission Date: 20110831
  Serious: Yes (Other)
  Sender: FDA-Public Use
  Company Number: US-PFIZER INC-2006059474

PATIENT
  Sex: Male

DRUGS (3)
  1. NEURONTIN [Suspect]
     Dosage: 200 MG, 3X/DAY
     Dates: start: 20020823
  2. NEURONTIN [Suspect]
     Dosage: 100 MG, UNK
     Dates: start: 20001027
  3. NEURONTIN [Suspect]
     Indication: ILL-DEFINED DISORDER
     Dosage: UNK
     Dates: start: 19980112

REACTIONS (3)
  - INTENTIONAL SELF-INJURY [None]
  - DEPRESSION [None]
  - SUICIDAL IDEATION [None]
